FAERS Safety Report 17890530 (Version 2)
Quarter: 2020Q2

REPORT INFORMATION
  Report Type: Report from Study
  Country: HU (occurrence: HU)
  Receive Date: 20200612
  Receipt Date: 20200615
  Transmission Date: 20200714
  Serious: Yes (Death)
  Sender: FDA-Public Use
  Company Number: HU-ACTELION-A-CH2020-205885

PATIENT
  Age: 69 Year
  Sex: Female
  Weight: 85 kg

DRUGS (2)
  1. OPSUMIT [Suspect]
     Active Substance: MACITENTAN
     Indication: PULMONARY HYPERTENSION
     Dosage: 10 MG, QD
     Route: 048
     Dates: start: 20200210, end: 20200529
  2. ADCIRCA [Concomitant]
     Active Substance: TADALAFIL
     Indication: PULMONARY HYPERTENSION
     Dosage: 40 MG, QD
     Route: 048
     Dates: start: 20200415, end: 20200529

REACTIONS (3)
  - Pulmonary oedema [Fatal]
  - Malaise [Unknown]
  - Right ventricular failure [Fatal]

NARRATIVE: CASE EVENT DATE: 20200529
